FAERS Safety Report 7973383-3 (Version None)
Quarter: 2011Q4

REPORT INFORMATION
  Report Type: 
  Country: None (occurrence: None)
  Receive Date: 20111213
  Receipt Date: 20111007
  Transmission Date: 20120403
  Serious: No
  Sender: FDA-Public Use
  Company Number: US-AMGEN-USASP2011051926

PATIENT
  Age: 88 Year
  Sex: Male

DRUGS (17)
  1. LOVAZA [Concomitant]
     Dosage: UNK
  2. ZOCOR [Concomitant]
  3. CENTRUM SILVER [Concomitant]
  4. SYNTHROID [Concomitant]
  5. ARANESP [Suspect]
     Indication: ANAEMIA
     Dosage: 100 MUG, Q2WK
     Dates: start: 20110601
  6. ASPIRIN [Concomitant]
     Dosage: UNK
  7. CALCIUM PLUS VITAMIN D3 [Concomitant]
  8. TEKTURNA [Concomitant]
  9. FLOMAX [Concomitant]
  10. COREG [Concomitant]
  11. PROSCAR [Concomitant]
  12. ATACAND [Concomitant]
  13. NORVASC [Concomitant]
  14. PRASTERONE [Concomitant]
  15. POTASSIUM IODIDE [Concomitant]
     Dates: start: 20110601
  16. MIRAPEX [Concomitant]
  17. CYTOMEL [Concomitant]

REACTIONS (2)
  - RASH PRURITIC [None]
  - PAIN [None]
